FAERS Safety Report 15660248 (Version 1)
Quarter: 2018Q4

REPORT INFORMATION
  Report Type: Spontaneous
  Country: US (occurrence: US)
  Receive Date: 20181127
  Receipt Date: 20181127
  Transmission Date: 20190205
  Serious: Yes (Hospitalization, Other)
  Sender: FDA-Public Use
  Company Number: US-AMGEN-USASP2018167700

PATIENT
  Age: 53 Year
  Sex: Female

DRUGS (5)
  1. PROLIA [Suspect]
     Active Substance: DENOSUMAB
     Dosage: 60 MG, Q6MO
     Route: 065
  2. PROLIA [Suspect]
     Active Substance: DENOSUMAB
     Dosage: 60 MG, Q6MO
     Route: 065
     Dates: end: 20170830
  3. PROLIA [Suspect]
     Active Substance: DENOSUMAB
     Dosage: 60 MG, Q6MO
     Route: 065
  4. FORTEO [Concomitant]
     Active Substance: TERIPARATIDE
     Indication: HYPERCALCAEMIA
  5. PROLIA [Suspect]
     Active Substance: DENOSUMAB
     Indication: OSTEOPOROSIS POSTMENOPAUSAL
     Dosage: 60 MG, Q6MO
     Route: 065
     Dates: start: 20160202

REACTIONS (14)
  - Diarrhoea [Unknown]
  - Tympanic membrane perforation [Unknown]
  - Barotitis media [Unknown]
  - Cystitis [Unknown]
  - Cellulitis [Unknown]
  - Tooth extraction [Unknown]
  - Osteonecrosis of jaw [Unknown]
  - Quality of life decreased [Unknown]
  - Osteomyelitis [Unknown]
  - Streptococcal abscess [Unknown]
  - Unevaluable event [Unknown]
  - Confusional state [Unknown]
  - Mood swings [Unknown]
  - Hypercalcaemia [Unknown]

NARRATIVE: CASE EVENT DATE: 201804
